FAERS Safety Report 7530316-1 (Version None)
Quarter: 2011Q2

REPORT INFORMATION
  Report Type: 
  Country: None (occurrence: None)
  Receive Date: 20110531
  Receipt Date: 20110517
  Transmission Date: 20111010
  Serious: Yes (Death)
  Sender: FDA-Public Use
  Company Number: 2011MA006202

PATIENT
  Age: 67 Year
  Sex: Female

DRUGS (8)
  1. SERTRALINE HYDROCHLORIDE [Suspect]
     Indication: DEPRESSION
  2. SIMVASTATIN [Concomitant]
  3. MICONAZOLE [Concomitant]
  4. SEROQUEL [Suspect]
     Indication: SLEEP DISORDER
     Dosage: 300 MG, HS, PO
     Route: 048
     Dates: start: 20110101
  5. PROCHLORPERAZINE TAB [Concomitant]
  6. DIAZEPAM [Concomitant]
  7. LANSOPRAZOLE [Concomitant]
  8. MICONAZOLE [Concomitant]

REACTIONS (3)
  - FEELING COLD [None]
  - COMPLETED SUICIDE [None]
  - OVERDOSE [None]
